FAERS Safety Report 20001129 (Version 2)
Quarter: 2021Q4

REPORT INFORMATION
  Report Type: Report from Study
  Country: DE (occurrence: None)
  Receive Date: 20211027
  Receipt Date: 20211222
  Transmission Date: 20220303
  Serious: Yes (Hospitalization)
  Sender: FDA-Public Use
  Company Number: DE-ROCHE-2941918

PATIENT
  Age: 68 Year
  Sex: Male
  Weight: 75 kg

DRUGS (4)
  1. TRASTUZUMAB [Suspect]
     Active Substance: TRASTUZUMAB
     Indication: HER2 positive gastric cancer
     Dosage: LAST DOSE ADMINISTERED: 465
     Route: 041
     Dates: start: 20180906, end: 20181025
  2. PERTUZUMAB [Suspect]
     Active Substance: PERTUZUMAB
     Indication: HER2 positive gastric cancer
     Dosage: LAST DOSE ADMINISTERED: 840 MG
     Route: 042
     Dates: start: 20180906, end: 20181025
  3. FLUOROURACIL [Suspect]
     Active Substance: FLUOROURACIL
     Indication: HER2 positive gastric cancer
     Dosage: D1-5 IN 3 WEEKLY SCHEDULE AT RATE 800 MG/DAY?LAST DOSE ADMINISTERED: 7680 MG
     Route: 042
     Dates: start: 20180906, end: 20181025
  4. CISPLATIN [Suspect]
     Active Substance: CISPLATIN
     Indication: HER2 positive gastric cancer
     Dosage: LAST DOSE ADMINISTERED: 153 MG
     Route: 042
     Dates: start: 20180906, end: 20181025

REACTIONS (1)
  - Dehydration [Recovered/Resolved]

NARRATIVE: CASE EVENT DATE: 20181109
